FAERS Safety Report 4861527-1 (Version None)
Quarter: 2005Q4

REPORT INFORMATION
  Report Type: 
  Country: None (occurrence: None)
  Receive Date: 20051220
  Receipt Date: 20051209
  Transmission Date: 20060501
  Serious: Yes (Other)
  Sender: FDA-Public Use
  Company Number: CA-BRISTOL-MYERS SQUIBB COMPANY-13219696

PATIENT
  Age: 84 Year
  Sex: Male

DRUGS (11)
  1. TEQUIN [Suspect]
     Route: 048
  2. CITALOPRAM HYDROBROMIDE [Concomitant]
  3. DILTIAZEM HCL [Concomitant]
  4. DOMPERIDONE [Concomitant]
  5. FUROSEMIDE [Concomitant]
  6. PARIET [Concomitant]
  7. RAMIPRIL [Concomitant]
  8. SENNOSIDES [Concomitant]
  9. SIMVASTATIN [Concomitant]
  10. TYLENOL [Concomitant]
  11. WARFARIN [Concomitant]

REACTIONS (2)
  - HYPERHIDROSIS [None]
  - HYPOGLYCAEMIA [None]
